FAERS Safety Report 4388988-9 (Version None)
Quarter: 2004Q3

REPORT INFORMATION
  Report Type: 
  Country: None (occurrence: None)
  Receive Date: 20040701
  Receipt Date: 20040701
  Transmission Date: 20050211
  Serious: Yes (Hospitalization)
  Sender: FDA-Public Use
  Company Number: None

PATIENT
  Sex: Male
  Weight: 75 kg

DRUGS (2)
  1. ENOXAPARIN SODIUM [Suspect]
     Indication: ATRIAL FIBRILLATION
     Dosage: 80 MG BID/SHORT DURATION
  2. ENOXAPARIN SODIUM [Suspect]
     Indication: VENTRICULAR EXTRASYSTOLES
     Dosage: 80 MG BID/SHORT DURATION

REACTIONS (1)
  - ABDOMINAL HAEMATOMA [None]
